FAERS Safety Report 8402249-X (Version None)
Quarter: 2012Q2

REPORT INFORMATION
  Report Type: 
  Country: None (occurrence: None)
  Receive Date: 20120601
  Receipt Date: 20120521
  Transmission Date: 20120825
  Serious: Yes (Other)
  Sender: FDA-Public Use
  Company Number: US-BRISTOL-MYERS SQUIBB COMPANY-16648784

PATIENT
  Age: 65 Year
  Sex: Male

DRUGS (3)
  1. HYDROXYUREA [Suspect]
  2. ECULIZUMAB [Suspect]
  3. WARFARIN SODIUM [Suspect]

REACTIONS (1)
  - BUDD-CHIARI SYNDROME [None]
